FAERS Safety Report 12278345 (Version 2)
Quarter: 2016Q2

REPORT INFORMATION
  Report Type: Spontaneous
  Country: US (occurrence: US)
  Receive Date: 20160418
  Receipt Date: 20160426
  Transmission Date: 20160815
  Serious: Yes (Hospitalization)
  Sender: FDA-Public Use
  Company Number: US-PFIZER INC-2016211131

PATIENT
  Age: 60 Year
  Sex: Female
  Weight: 83 kg

DRUGS (5)
  1. PREDNISONE. [Suspect]
     Active Substance: PREDNISONE
     Dosage: UNK
  2. NALTREXONE [Concomitant]
     Active Substance: NALTREXONE
     Indication: MULTIPLE SCLEROSIS
     Dosage: 4.5 MG
  3. CELEBREX [Suspect]
     Active Substance: CELECOXIB
     Indication: ARTHRITIS
     Dosage: 100 MG, 1X/DAY
  4. CELEBREX [Suspect]
     Active Substance: CELECOXIB
     Dosage: 200 MG, 1X/DAY
  5. CYCLOBENZAPRINE [Concomitant]
     Active Substance: CYCLOBENZAPRINE
     Indication: MUSCLE SPASMS
     Dosage: 10 MG

REACTIONS (9)
  - Arthritis [Unknown]
  - Exostosis [Unknown]
  - Fall [Unknown]
  - Pain [Unknown]
  - Bursitis [Unknown]
  - Blood pressure increased [Unknown]
  - Disease progression [Unknown]
  - Weight decreased [Unknown]
  - Intervertebral disc protrusion [Unknown]
